FAERS Safety Report 9382358 (Version 2)
Quarter: 2013Q3

REPORT INFORMATION
  Report Type: Spontaneous
  Country: IT (occurrence: IT)
  Receive Date: 20130703
  Receipt Date: 20130725
  Transmission Date: 20140515
  Serious: Yes (Hospitalization)
  Sender: FDA-Public Use
  Company Number: IT-BRISTOL-MYERS SQUIBB COMPANY-19062348

PATIENT
  Age: 85 Year
  Sex: Female

DRUGS (4)
  1. COUMADIN TABS 5 MG [Suspect]
     Indication: ATRIAL FIBRILLATION
     Route: 048
     Dates: start: 20080601, end: 20130625
  2. DILATREND [Concomitant]
     Dosage: TABS
  3. LASIX [Concomitant]
     Dosage: TABS
  4. KANRENOL [Concomitant]
     Dosage: TABS

REACTIONS (2)
  - Subdural haematoma [Not Recovered/Not Resolved]
  - Fall [Unknown]
